FAERS Safety Report 17399848 (Version 1)
Quarter: 2020Q1

REPORT INFORMATION
  Report Type: Spontaneous
  Country: NL (occurrence: NL)
  Receive Date: 20200211
  Receipt Date: 20200211
  Transmission Date: 20200409
  Serious: Yes (Other)
  Sender: FDA-Public Use
  Company Number: NL-SUN PHARMACEUTICAL INDUSTRIES LTD-2020RR-236170

PATIENT
  Sex: Female
  Weight: 82 kg

DRUGS (23)
  1. CELECOXIB. [Suspect]
     Active Substance: CELECOXIB
     Indication: PRODUCT USED FOR UNKNOWN INDICATION
     Dosage: UNK ()
     Route: 065
     Dates: start: 20190222, end: 20190301
  2. AMLODIPINE [Concomitant]
     Active Substance: AMLODIPINE BESYLATE
     Dosage: 5 MG, OT
     Route: 065
     Dates: start: 20190405, end: 20190507
  3. DAGRAVIT /01709701/ [Concomitant]
     Indication: PRODUCT USED FOR UNKNOWN INDICATION
     Dosage: 1 DF, QD (TOTAL 30 LOZENGE) (ALREADY AT START TREATMENT RELATION)
     Route: 048
  4. PAROXETIN [PAROXETINE] [Concomitant]
     Active Substance: PAROXETINE
     Indication: PRODUCT USED FOR UNKNOWN INDICATION
     Dosage: 60 MG, 1X/DAY (1DD FOR THE NIGHT (AN) ALREADY DOZENS OF YEARS AGO)
     Route: 048
  5. LISINOPRIL. [Concomitant]
     Active Substance: LISINOPRIL
     Indication: PRODUCT USED FOR UNKNOWN INDICATION
     Dosage: 20 MG, 1X/DAY
     Route: 048
     Dates: start: 20190722
  6. IMATINIB. [Suspect]
     Active Substance: IMATINIB MESYLATE
     Indication: CHRONIC MYELOID LEUKAEMIA
     Dosage: 400 MG
     Route: 048
     Dates: start: 20180425, end: 20181012
  7. OMEPRAZOLE TEVA [OMEPRAZOLE] [Concomitant]
     Indication: PRODUCT USED FOR UNKNOWN INDICATION
     Dosage: 40 MG, 1X/DAY (1DD FOR THE NIGHT (AN)
     Route: 065
     Dates: start: 20180420
  8. PONATINIB [Concomitant]
     Active Substance: PONATINIB
     Indication: PRODUCT USED FOR UNKNOWN INDICATION
     Dosage: 45 MG, 1X/DAY
     Route: 065
     Dates: start: 20190222
  9. LEVOCETIRIZINE [Concomitant]
     Active Substance: LEVOCETIRIZINE
     Indication: PRODUCT USED FOR UNKNOWN INDICATION
     Dosage: 5 MG, 1X/DAY (AT NIGHT (AN) ALREADY AT START TREATMENT RELATION)
     Route: 048
  10. PANTOPRAZOL [Suspect]
     Active Substance: PANTOPRAZOLE SODIUM
     Indication: PRODUCT USED FOR UNKNOWN INDICATION
     Dosage: UNK ()
     Route: 065
  11. IMATINIB. [Suspect]
     Active Substance: IMATINIB MESYLATE
     Dosage: UNK
     Route: 065
     Dates: start: 20180426, end: 20181019
  12. PRAVASTATIN. [Suspect]
     Active Substance: PRAVASTATIN
     Indication: PRODUCT USED FOR UNKNOWN INDICATION
     Dosage: 20 MG
     Route: 065
     Dates: start: 20190711, end: 20190807
  13. ETHINYLESTRADIOL/GESTODEEN MYLAN [Concomitant]
     Indication: PRODUCT USED FOR UNKNOWN INDICATION
     Dosage: 20 MCG/75 MCG (1 PIECE, 1DD ALREADY AT START TREATMENT RELATION) ()
     Route: 048
  14. PARACETAMOL [Concomitant]
     Active Substance: ACETAMINOPHEN
     Indication: PRODUCT USED FOR UNKNOWN INDICATION
     Dosage: 500 MG, TID (WHEN NECESSARY BEFORE DIAGNOSIS)
     Route: 065
  15. PARACETAMOL [Concomitant]
     Active Substance: ACETAMINOPHEN
     Dosage: 1500 MG, 3X/DAY AS NEEDED BEFORE DIAGNOSIS
     Route: 065
  16. OXAZEPAM. [Concomitant]
     Active Substance: OXAZEPAM
     Indication: PRODUCT USED FOR UNKNOWN INDICATION
     Dosage: 10 MG, 1X/DAY (1DD WHEN NECESSARY)
     Route: 048
  17. HYDREA [Concomitant]
     Active Substance: HYDROXYUREA
     Indication: PRODUCT USED FOR UNKNOWN INDICATION
     Dosage: 1000 MG, 3X/DAY
     Route: 048
     Dates: start: 20190420, end: 20190429
  18. REVOLADE [Suspect]
     Active Substance: ELTROMBOPAG
     Indication: PRODUCT USED FOR UNKNOWN INDICATION
     Dosage: UNK
     Route: 048
     Dates: start: 20190612, end: 20191106
  19. DAGRAVIT [IRON;VITAMINS NOS] [Concomitant]
     Indication: PRODUCT USED FOR UNKNOWN INDICATION
     Dosage: 1 DF, 1X/DAY (TOTAL 30 TABLETS) (ALREADY AT START TREATMENT RELATION)
     Route: 048
  20. CALCIUM CARBONATE. [Concomitant]
     Active Substance: CALCIUM CARBONATE
     Indication: PRODUCT USED FOR UNKNOWN INDICATION
     Dosage: 1 G, 1X/DAY (ALREADY AT START TREATMENT RELATION)
     Route: 048
  21. DASATINIB. [Suspect]
     Active Substance: DASATINIB
     Indication: PRODUCT USED FOR UNKNOWN INDICATION
     Dosage: 100 MG, 1X/DAY
     Route: 048
     Dates: start: 20181012, end: 20190222
  22. ETHINYLESTRADIOL/GESTODEEN MYLAN [Concomitant]
     Dosage: 20 MCG/75 MCG (1 PIECE, 1DD ALREADY AT START TREATMENT RELATION) ()
     Route: 048
  23. AMLODIPINE [Concomitant]
     Active Substance: AMLODIPINE BESYLATE
     Indication: PRODUCT USED FOR UNKNOWN INDICATION
     Dosage: 10 MG, OT
     Route: 065
     Dates: start: 20190529, end: 20190808

REACTIONS (21)
  - Dizziness [Unknown]
  - Fatigue [Unknown]
  - Nausea [Unknown]
  - Therapeutic product effect incomplete [Unknown]
  - Musculoskeletal stiffness [Unknown]
  - Cytogenetic analysis abnormal [Unknown]
  - Pancytopenia [Recovering/Resolving]
  - Thrombocytopenia [Not Recovered/Not Resolved]
  - Diarrhoea [Unknown]
  - Hot flush [Recovered/Resolved]
  - Poor quality sleep [Unknown]
  - Flatulence [Unknown]
  - Myalgia [Unknown]
  - Increased appetite [Unknown]
  - Feeling hot [Unknown]
  - Decreased appetite [Unknown]
  - Leukocytosis [Unknown]
  - Anaemia [Unknown]
  - Headache [Unknown]
  - Weight increased [Unknown]
  - Pain in extremity [Unknown]

NARRATIVE: CASE EVENT DATE: 20180425
